FAERS Safety Report 7002105-8 (Version None)
Quarter: 2010Q3

REPORT INFORMATION
  Report Type: 
  Country: None (occurrence: None)
  Receive Date: 20100920
  Receipt Date: 20070713
  Transmission Date: 20110219
  Serious: Yes (Other)
  Sender: FDA-Public Use
  Company Number: US-ASTRAZENECA-2006UW25027

PATIENT
  Age: 21449 Day
  Sex: Female
  Weight: 98.9 kg

DRUGS (15)
  1. SEROQUEL [Suspect]
     Route: 048
     Dates: start: 20050501, end: 20060101
  2. SEROQUEL [Suspect]
     Dosage: 25 MG
     Route: 048
     Dates: start: 20050525
  3. ZYPREXA [Suspect]
     Dates: start: 20050101
  4. ZYPREXA [Suspect]
     Dosage: 5 MG
     Dates: start: 20050516
  5. RANITIDINE [Concomitant]
     Dosage: 300 MG
     Dates: start: 20041109
  6. VERELAN [Concomitant]
     Dosage: 200-300 MG
     Dates: start: 20050208
  7. HYZAAR [Concomitant]
     Dosage: 10/25, 100-25
     Dates: start: 20050218
  8. LEXAPRO [Concomitant]
     Dosage: 10-20 MG
     Dates: start: 20050218
  9. BUSPIRONE HCL [Concomitant]
     Dosage: 15 MG
     Dates: start: 20050407
  10. IBUPROFEN [Concomitant]
     Dosage: 400 MG
     Dates: start: 20050505
  11. TRIAMTERENE [Concomitant]
     Dosage: 50-75 MG
     Dates: start: 20050613
  12. SYNTHROID [Concomitant]
     Dosage: 0.05
     Dates: start: 19940808
  13. ALLOPURINOL [Concomitant]
     Dosage: 300 MG
     Dates: start: 20050504
  14. HYDROXYZ PAM [Concomitant]
     Dosage: 25 MG
     Dates: start: 20050902
  15. PREMARIN [Concomitant]
     Dosage: 0.65
     Dates: start: 19940808

REACTIONS (1)
  - DIABETES MELLITUS [None]
